FAERS Safety Report 6383077-6 (Version None)
Quarter: 2009Q3

REPORT INFORMATION
  Report Type: 
  Country: None (occurrence: None)
  Receive Date: 20090928
  Receipt Date: 20090914
  Transmission Date: 20100115
  Serious: Yes (Death)
  Sender: FDA-Public Use
  Company Number: OPIR20090032

PATIENT
  Age: 39 Year
  Sex: Male

DRUGS (4)
  1. OPANA [Suspect]
     Indication: DRUG USE FOR UNKNOWN INDICATION
     Dosage: PER ORAL
     Route: 048
  2. BENADRYL [Suspect]
  3. ETHANOL (ETHANOL) [Suspect]
  4. MARIJUANA (CANNABIS SATIVA) [Suspect]

REACTIONS (6)
  - ACCIDENTAL DEATH [None]
  - ASPIRATION [None]
  - CARDIAC ARREST [None]
  - DRUG TOXICITY [None]
  - PNEUMONIA [None]
  - PULMONARY OEDEMA [None]
